FAERS Safety Report 20619506 (Version 1)
Quarter: 2022Q1

REPORT INFORMATION
  Report Type: Report from Study
  Country: FR (occurrence: FR)
  Receive Date: 20220322
  Receipt Date: 20220322
  Transmission Date: 20220423
  Serious: Yes (Other)
  Sender: FDA-Public Use
  Company Number: FR-SERVIER-S22002689

PATIENT

DRUGS (8)
  1. IVOSIDENIB [Suspect]
     Active Substance: IVOSIDENIB
     Indication: Acute myeloid leukaemia
     Dosage: 500 MG, UNKNOWN
     Route: 065
     Dates: start: 20211020, end: 20220210
  2. INNOHEP [Concomitant]
     Active Substance: TINZAPARIN SODIUM
     Indication: Deep vein thrombosis
     Dosage: 0.4 ML
     Route: 058
     Dates: start: 20210929
  3. ETIFOXINE [Concomitant]
     Active Substance: ETIFOXINE
     Indication: Anxiety
     Dosage: ON DEMAND
     Route: 048
     Dates: start: 20211001
  4. TN UNSPECIFIED [Concomitant]
     Dosage: ON DEMAND
     Route: 048
     Dates: start: 20211001
  5. TN UNSPECIFIED [Concomitant]
     Indication: Hyponatraemia
     Dosage: 30 MG
     Route: 048
     Dates: start: 20211110
  6. TN UNSPECIFIED [Concomitant]
     Dosage: 30 MG
     Route: 048
     Dates: start: 20220210
  7. TN UNSPECIFIED [Concomitant]
     Indication: Bone pain
     Dosage: 50 MG
     Route: 048
     Dates: start: 20211115
  8. LOVENOX [Concomitant]
     Active Substance: ENOXAPARIN SODIUM
     Indication: Product used for unknown indication
     Dosage: 4000 IU
     Route: 058
     Dates: start: 20220301

REACTIONS (1)
  - Pancytopenia [Not Recovered/Not Resolved]

NARRATIVE: CASE EVENT DATE: 20220308
